FAERS Safety Report 6809518-5 (Version None)
Quarter: 2010Q2

REPORT INFORMATION
  Report Type: 
  Country: None (occurrence: None)
  Receive Date: 20100630
  Receipt Date: 20100616
  Transmission Date: 20101027
  Serious: Yes (Other)
  Sender: FDA-Public Use
  Company Number: PHHY2009CA27667

PATIENT
  Sex: Male

DRUGS (1)
  1. ACLASTA [Suspect]
     Indication: OSTEOPOROSIS
     Dosage: UNK
     Dates: start: 20090629

REACTIONS (6)
  - BLOOD URINE PRESENT [None]
  - CHROMATURIA [None]
  - INFLUENZA [None]
  - MYOCARDIAL INFARCTION [None]
  - PAIN [None]
  - PYREXIA [None]
